FAERS Safety Report 13379859 (Version 2)
Quarter: 2017Q2

REPORT INFORMATION
  Report Type: Spontaneous
  Country: JP (occurrence: JP)
  Receive Date: 20170328
  Receipt Date: 20170411
  Transmission Date: 20170830
  Serious: Yes (Death, Hospitalization)
  Sender: FDA-Public Use
  Company Number: JP-ELI_LILLY_AND_COMPANY-JP201611004701

PATIENT
  Age: 63 Year
  Sex: Male
  Weight: 68 kg

DRUGS (5)
  1. POLARAMIN [Concomitant]
     Active Substance: DEXCHLORPHENIRAMINE MALEATE
     Dosage: UNK
  2. CYRAMZA [Suspect]
     Active Substance: RAMUCIRUMAB
     Indication: LUNG SQUAMOUS CELL CARCINOMA RECURRENT
     Dosage: 680 MG, OTHER
     Route: 042
     Dates: start: 20160722, end: 20161028
  3. G LASTA [Concomitant]
     Active Substance: PEGFILGRASTIM
     Dosage: 3.6 MG, UNK
     Route: 058
     Dates: start: 20160723, end: 20160914
  4. DECADRON                           /00016002/ [Concomitant]
     Active Substance: DEXAMETHASONE
     Dosage: UNK
  5. DOCETAXEL. [Suspect]
     Active Substance: DOCETAXEL
     Indication: LUNG SQUAMOUS CELL CARCINOMA RECURRENT
     Dosage: 100 MG, OTHER
     Route: 042
     Dates: start: 20160722, end: 20161028

REACTIONS (3)
  - Nausea [Unknown]
  - Interstitial lung disease [Fatal]
  - Epistaxis [Recovered/Resolved]

NARRATIVE: CASE EVENT DATE: 20161104
